FAERS Safety Report 22357554 (Version 5)
Quarter: 2024Q3

REPORT INFORMATION
  Report Type: Report from Study
  Country: US (occurrence: US)
  Receive Date: 20230524
  Receipt Date: 20240703
  Transmission Date: 20241016
  Serious: Yes (Disabling, Other)
  Sender: RECORDATI
  Company Number: US-RECORDATI RARE DISEASE INC.-2023003114

PATIENT

DRUGS (6)
  1. CYSTADROPS [Suspect]
     Active Substance: CYSTEAMINE HYDROCHLORIDE
     Indication: Cystinosis
     Dosage: 1 GTT DROP (EACH EYE), QID
     Route: 047
     Dates: start: 20210601, end: 202106
  2. CYSTADROPS [Suspect]
     Active Substance: CYSTEAMINE HYDROCHLORIDE
     Dosage: 2 GTT DROPS (1 GTT DROP IN EACH EYE), QID
     Route: 047
     Dates: start: 202106, end: 202106
  3. CYSTADROPS [Suspect]
     Active Substance: CYSTEAMINE HYDROCHLORIDE
     Dosage: 2 GTT DROPS (1 GTT DROP IN EACH EYE), QID
     Route: 047
     Dates: start: 20210621
  4. CYSTAGON [Suspect]
     Active Substance: CYSTEAMINE BITARTRATE
     Indication: Product used for unknown indication
     Dosage: UNK
  5. CYSTARAN [Suspect]
     Active Substance: CYSTEAMINE HYDROCHLORIDE
     Indication: Product used for unknown indication
     Dosage: 1 GTT DROPS, QH
     Route: 047
  6. PROCYSBI [Concomitant]
     Active Substance: CYSTEAMINE BITARTRATE
     Indication: Cystinosis
     Dosage: UNK
     Route: 048

REACTIONS (7)
  - Eye oedema [Unknown]
  - Corneal transplant [Recovering/Resolving]
  - Retinal injury [Recovering/Resolving]
  - Eye inflammation [Recovering/Resolving]
  - Retinal detachment [Recovering/Resolving]
  - Eye irritation [Recovered/Resolved with Sequelae]
  - Ocular hyperaemia [Recovered/Resolved with Sequelae]

NARRATIVE: CASE EVENT DATE: 20230101
